APPROVED DRUG PRODUCT: WARFARIN SODIUM
Active Ingredient: WARFARIN SODIUM
Strength: 2MG
Dosage Form/Route: TABLET;ORAL
Application: A086123 | Product #001
Applicant: WATSON LABORATORIES INC
Approved: Aug 17, 1982 | RLD: No | RS: No | Type: DISCN